FAERS Safety Report 23902611 (Version 1)
Quarter: 2024Q2

REPORT INFORMATION
  Report Type: Spontaneous
  Country: CZ (occurrence: CZ)
  Receive Date: 20240527
  Receipt Date: 20240527
  Transmission Date: 20240716
  Serious: Yes (Life-Threatening, Hospitalization, Other)
  Sender: FDA-Public Use
  Company Number: CZ-EMA-DD-20210119-kumarvn_p-140325

PATIENT
  Age: 82 Year
  Sex: Female

DRUGS (63)
  1. ACETAMINOPHEN [Suspect]
     Active Substance: ACETAMINOPHEN
     Indication: Analgesic therapy
     Dosage: UNK
     Route: 048
  2. ACETAMINOPHEN [Suspect]
     Active Substance: ACETAMINOPHEN
     Indication: Pain
  3. DIAZEPAM [Suspect]
     Active Substance: DIAZEPAM
     Indication: Partial seizures
     Dosage: UNK
     Route: 042
  4. DIAZEPAM [Suspect]
     Active Substance: DIAZEPAM
     Indication: Hypertension
  5. DIAZEPAM [Suspect]
     Active Substance: DIAZEPAM
     Indication: Generalised tonic-clonic seizure
  6. DIAZEPAM [Suspect]
     Active Substance: DIAZEPAM
     Indication: Seizure
  7. GLIQUIDONE [Suspect]
     Active Substance: GLIQUIDONE
     Indication: Product used for unknown indication
     Route: 048
  8. GLIQUIDONE [Suspect]
     Active Substance: GLIQUIDONE
     Route: 016
  9. IBUPROFEN SODIUM [Suspect]
     Active Substance: IBUPROFEN SODIUM
     Indication: Analgesic therapy
     Dosage: UNK
     Route: 048
  10. IBUPROFEN SODIUM [Suspect]
     Active Substance: IBUPROFEN SODIUM
     Indication: Pain
  11. LEVETIRACETAM [Suspect]
     Active Substance: LEVETIRACETAM
     Indication: Partial seizures
     Dosage: 3000 MG, QD
     Route: 042
  12. LEVETIRACETAM [Suspect]
     Active Substance: LEVETIRACETAM
     Indication: Generalised tonic-clonic seizure
     Dosage: 40 MG/KG
     Route: 042
  13. LEVETIRACETAM [Suspect]
     Active Substance: LEVETIRACETAM
     Dosage: 40 MG/M2
     Route: 042
  14. LERCANIDIPINE HYDROCHLORIDE [Concomitant]
     Active Substance: LERCANIDIPINE HYDROCHLORIDE
     Indication: Hypertension
     Dosage: UNK
     Route: 048
  15. LERCANIDIPINE HYDROCHLORIDE [Concomitant]
     Active Substance: LERCANIDIPINE HYDROCHLORIDE
     Dosage: UNK
     Route: 016
  16. RAMIPRIL [Concomitant]
     Active Substance: RAMIPRIL
     Indication: Hypertension
     Dosage: UNK
     Route: 048
  17. ASPIRIN\GLYCINE [Concomitant]
     Active Substance: ASPIRIN\GLYCINE
     Indication: Product used for unknown indication
     Dosage: UNK
     Route: 048
  18. EUTHYROX [Concomitant]
     Active Substance: LEVOTHYROXINE SODIUM
     Indication: Product used for unknown indication
     Dosage: UNK
     Route: 048
  19. EUTHYROX [Concomitant]
     Active Substance: LEVOTHYROXINE SODIUM
     Dosage: UNK
     Route: 065
  20. SIMVASTATIN [Concomitant]
     Active Substance: SIMVASTATIN
     Indication: Hypercholesterolaemia
     Dosage: UNK
     Route: 048
  21. SIMVASTATIN [Concomitant]
     Active Substance: SIMVASTATIN
     Route: 016
  22. METAMIZOLE SODIUM [Suspect]
     Active Substance: METAMIZOLE SODIUM
     Indication: Pain
  23. SIMVASTATIN [Concomitant]
     Active Substance: SIMVASTATIN
     Indication: Product used for unknown indication
     Dosage: UNK
     Route: 065
  24. SIMVASTATIN [Concomitant]
     Active Substance: SIMVASTATIN
     Dosage: UNK
     Route: 016
  25. CEFTRIAXONE SODIUM [Suspect]
     Active Substance: CEFTRIAXONE SODIUM
     Indication: Pneumonia
     Dosage: UNK
     Route: 048
  26. PROPOFOL [Suspect]
     Active Substance: PROPOFOL
     Indication: Generalised tonic-clonic seizure
     Route: 065
  27. PROPOFOL [Suspect]
     Active Substance: PROPOFOL
     Indication: Clonic convulsion
     Route: 016
  28. PROPOFOL [Suspect]
     Active Substance: PROPOFOL
     Indication: Epilepsy
     Route: 065
  29. PROPOFOL [Suspect]
     Active Substance: PROPOFOL
     Indication: Seizure
  30. BETAXOLOL HYDROCHLORIDE [Concomitant]
     Active Substance: BETAXOLOL HYDROCHLORIDE
     Indication: Hypertension
     Route: 048
  31. GLIQUIDONE [Concomitant]
     Active Substance: GLIQUIDONE
     Indication: Product used for unknown indication
     Dosage: UNK
     Route: 048
  32. GLIQUIDONE [Concomitant]
     Active Substance: GLIQUIDONE
     Dosage: UNK
     Route: 048
  33. VALPROATE SODIUM [Suspect]
     Active Substance: VALPROATE SODIUM
     Indication: Seizure
     Route: 065
  34. VALPROATE SODIUM [Suspect]
     Active Substance: VALPROATE SODIUM
     Indication: Generalised tonic-clonic seizure
     Dosage: 30 MG/ KG, QD
     Route: 016
  35. VALPROATE SODIUM [Suspect]
     Active Substance: VALPROATE SODIUM
     Indication: Product used for unknown indication
  36. VALPROATE SODIUM [Suspect]
     Active Substance: VALPROATE SODIUM
     Indication: Partial seizures
  37. VALPROATE SODIUM [Suspect]
     Active Substance: VALPROATE SODIUM
     Indication: Epilepsy
  38. VALPROATE SODIUM [Suspect]
     Active Substance: VALPROATE SODIUM
     Indication: Status epilepticus
  39. ALLOPURINOL [Suspect]
     Active Substance: ALLOPURINOL
     Indication: Gout
     Route: 048
  40. ALLOPURINOL [Suspect]
     Active Substance: ALLOPURINOL
     Route: 065
  41. AMOXICILLIN [Suspect]
     Active Substance: AMOXICILLIN
     Indication: Pneumonia
     Dosage: UNK
     Route: 048
  42. AMOXICILLIN [Suspect]
     Active Substance: AMOXICILLIN
     Dosage: UNK
     Route: 048
  43. GLYCINE [Concomitant]
     Active Substance: GLYCINE
     Indication: Product used for unknown indication
     Dosage: UNK
     Route: 065
  44. METAMIZOLE [Suspect]
     Active Substance: METAMIZOLE
     Indication: Pain
     Dosage: UNK
  45. METAMIZOLE [Suspect]
     Active Substance: METAMIZOLE
     Dosage: UNK
     Route: 048
  46. PHENYTOIN [Suspect]
     Active Substance: PHENYTOIN
     Indication: Seizure
     Dosage: 20 MG/KG, QD
     Route: 042
  47. PHENYTOIN [Suspect]
     Active Substance: PHENYTOIN
     Indication: Generalised tonic-clonic seizure
     Route: 065
  48. PHENYTOIN [Suspect]
     Active Substance: PHENYTOIN
     Indication: Partial seizures
     Route: 065
  49. PHENYTOIN [Suspect]
     Active Substance: PHENYTOIN
     Indication: Status epilepticus
     Route: 065
  50. FLUCONAZOLE [Suspect]
     Active Substance: FLUCONAZOLE
     Indication: Antifungal treatment
     Dosage: UNK
     Route: 048
  51. FLUCONAZOLE [Suspect]
     Active Substance: FLUCONAZOLE
     Indication: Pneumonia
     Dosage: UNK
     Route: 065
  52. cynt [Concomitant]
     Indication: Hypertension
     Route: 048
  53. ALLOPURINOL [Suspect]
     Active Substance: ALLOPURINOL
     Indication: Product used for unknown indication
     Route: 065
  54. IBUPROFEN [Suspect]
     Active Substance: IBUPROFEN
     Indication: Pain
     Route: 048
  55. ASPIRIN [Concomitant]
     Active Substance: ASPIRIN
     Indication: Product used for unknown indication
     Route: 065
  56. LECANIDIPINE [Concomitant]
     Indication: Product used for unknown indication
  57. RAMIPRIL [Concomitant]
     Active Substance: RAMIPRIL
     Indication: Product used for unknown indication
     Route: 048
  58. RAMIPRIL [Concomitant]
     Active Substance: RAMIPRIL
  59. BETAXOLOL [Concomitant]
     Active Substance: BETAXOLOL\BETAXOLOL HYDROCHLORIDE
     Indication: Product used for unknown indication
  60. MOXONIDINE [Concomitant]
     Active Substance: MOXONIDINE
     Indication: Product used for unknown indication
     Route: 048
  61. DIAZEPAM [Concomitant]
     Active Substance: DIAZEPAM
     Indication: Partial seizures
     Dosage: ADMINISTERED ALREADY IN AMBULANCE
     Route: 065
  62. DIAZEPAM [Concomitant]
     Active Substance: DIAZEPAM
     Indication: Hypertension
     Dosage: ADMINISTERED ALREADY IN AMBULANCE
     Route: 065
  63. DIAZEPAM [Concomitant]
     Active Substance: DIAZEPAM
     Indication: Generalised tonic-clonic seizure
     Dosage: ADMINISTERED ALREADY IN AMBULANCE
     Route: 065

REACTIONS (8)
  - Stevens-Johnson syndrome [Recovered/Resolved with Sequelae]
  - Skin laceration [Recovered/Resolved with Sequelae]
  - Drug ineffective [Unknown]
  - Rash [Recovered/Resolved with Sequelae]
  - Sopor [Recovering/Resolving]
  - Status epilepticus [Recovering/Resolving]
  - Pneumonia [Recovering/Resolving]
  - Depressed level of consciousness [Recovering/Resolving]
